FAERS Safety Report 19719993 (Version 1)
Quarter: 2021Q3

REPORT INFORMATION
  Report Type: Spontaneous
  Country: US (occurrence: US)
  Receive Date: 20210819
  Receipt Date: 20210819
  Transmission Date: 20211014
  Serious: No
  Sender: FDA-Public Use
  Company Number: None

PATIENT
  Age: 35 Year
  Sex: Male
  Weight: 84 kg

DRUGS (2)
  1. IMDEVIMAB (INV?IMDEVIMAB 120MG/ML INJ, SOLN) [Suspect]
     Active Substance: IMDEVIMAB
     Indication: COVID-19
     Route: 042
     Dates: start: 20210719, end: 20210719
  2. CASIRIVIMAB (INV?CASIRIVIMAB 120MG/ML INJ, SOLN) [Suspect]
     Active Substance: CASIRIVIMAB
     Indication: COVID-19
     Route: 042
     Dates: start: 20210719, end: 20210719

REACTIONS (6)
  - Feeling hot [None]
  - Rash [None]
  - Obstructive airways disorder [None]
  - Dyspnoea [None]
  - Erythema [None]
  - Wheezing [None]

NARRATIVE: CASE EVENT DATE: 20210719
